FAERS Safety Report 8133173-8 (Version None)
Quarter: 2012Q1

REPORT INFORMATION
  Report Type: 
  Country: None (occurrence: None)
  Receive Date: 20120213
  Receipt Date: 20120209
  Transmission Date: 20120608
  Serious: Yes (Death)
  Sender: FDA-Public Use
  Company Number: PHEH2012US003476

PATIENT
  Age: 64 Year
  Sex: Male

DRUGS (1)
  1. FOCALIN XR [Suspect]

REACTIONS (1)
  - DEATH [None]
